FAERS Safety Report 5275680-1 (Version None)
Quarter: 2007Q1

REPORT INFORMATION
  Report Type: 
  Country: None (occurrence: None)
  Receive Date: 20061213
  Receipt Date: 20040406
  Transmission Date: 20070707
  Serious: Yes (Other)
  Sender: FDA-Public Use
  Company Number: 2004UW06776

PATIENT
  Sex: Female

DRUGS (2)
  1. SEROQUEL [Suspect]
     Dosage: 200 MG DAILY PO
     Route: 048
     Dates: start: 20030101, end: 20030101
  2. SERZONE [Suspect]
     Dosage: 200 MG DAILY PO
     Route: 048

REACTIONS (1)
  - MEDICATION ERROR [None]
